FAERS Safety Report 5990045-2 (Version None)
Quarter: 2008Q4

REPORT INFORMATION
  Report Type: 
  Country: None (occurrence: None)
  Receive Date: 20081209
  Receipt Date: 20081125
  Transmission Date: 20090506
  Serious: Yes (Hospitalization)
  Sender: FDA-Public Use
  Company Number: FABR-1000538

PATIENT
  Age: 56 Year
  Sex: Female
  Weight: 80 kg

DRUGS (1)
  1. FABRAZYME [Suspect]
     Indication: FABRY'S DISEASE
     Dosage: 80 MG, Q2W, INTRAVENOUS, 105 MG, Q2W, INTRAVENOUS
     Route: 042
     Dates: start: 20040101, end: 20070701

REACTIONS (13)
  - ABDOMINAL ABSCESS [None]
  - ASTHENIA [None]
  - BENIGN BREAST NEOPLASM [None]
  - CHOLECYSTITIS [None]
  - CONSTIPATION [None]
  - DECUBITUS ULCER [None]
  - DEPRESSION [None]
  - ENTEROCUTANEOUS FISTULA [None]
  - GENERAL PHYSICAL HEALTH DETERIORATION [None]
  - HEPATIC STEATOSIS [None]
  - PANCREATITIS [None]
  - SEPSIS [None]
  - ULCER [None]
